FAERS Safety Report 19948735 (Version 4)
Quarter: 2022Q2

REPORT INFORMATION
  Report Type: Report from Study
  Country: CA (occurrence: CA)
  Receive Date: 20211012
  Receipt Date: 20220621
  Transmission Date: 20220720
  Serious: Yes (Hospitalization, Other)
  Sender: FDA-Public Use
  Company Number: CA-ABBVIE-21K-028-4063160-00

PATIENT
  Sex: Female

DRUGS (5)
  1. RINVOQ [Suspect]
     Active Substance: UPADACITINIB
     Indication: Rheumatoid arthritis
     Route: 048
     Dates: start: 20210512, end: 20210827
  2. RINVOQ [Suspect]
     Active Substance: UPADACITINIB
     Route: 048
     Dates: start: 20210922, end: 2021
  3. RINVOQ [Suspect]
     Active Substance: UPADACITINIB
     Route: 048
     Dates: start: 2021
  4. METHOTREXATE [Suspect]
     Active Substance: METHOTREXATE
     Indication: Product used for unknown indication
     Route: 058
     Dates: start: 20201106, end: 20210827
  5. TYLENOL [Concomitant]
     Active Substance: ACETAMINOPHEN
     Indication: Pyrexia
     Dates: start: 2021

REACTIONS (15)
  - Pulmonary oedema [Recovered/Resolved]
  - Inflammation [Recovered/Resolved]
  - Pulmonary oedema [Unknown]
  - Atypical pneumonia [Unknown]
  - Abdominal pain [Unknown]
  - Immunosuppression [Unknown]
  - Blood urine present [Unknown]
  - Protein urine present [Unknown]
  - Hepatic cyst [Unknown]
  - Malaise [Unknown]
  - Heart rate decreased [Unknown]
  - Oxygen saturation decreased [Unknown]
  - Infection [Unknown]
  - Hepatic lesion [Unknown]
  - Haemangioma [Unknown]

NARRATIVE: CASE EVENT DATE: 20210101
